FAERS Safety Report 14069914 (Version 1)
Quarter: 2017Q4

REPORT INFORMATION
  Report Type: Spontaneous
  Country: NZ (occurrence: NZ)
  Receive Date: 20171010
  Receipt Date: 20171010
  Transmission Date: 20180321
  Serious: Yes (Death)
  Sender: FDA-Public Use
  Company Number: NZ-009507513-1710NZL003573

PATIENT
  Age: 78 Year
  Sex: Male

DRUGS (5)
  1. CILAZAPRIL (+) HYDROCHLOROTHIAZIDE [Suspect]
     Active Substance: CILAZAPRIL ANHYDROUS\HYDROCHLOROTHIAZIDE
  2. DICLOFENAC [Suspect]
     Active Substance: DICLOFENAC
  3. PREDNISONE. [Suspect]
     Active Substance: PREDNISONE
     Route: 048
  4. IVERMECTIN. [Suspect]
     Active Substance: IVERMECTIN
     Route: 048
  5. ATORVASTATIN [Suspect]
     Active Substance: ATORVASTATIN

REACTIONS (1)
  - Sudden death [Fatal]

NARRATIVE: CASE EVENT DATE: 201602
